FAERS Safety Report 15480021 (Version 1)
Quarter: 2018Q4

REPORT INFORMATION
  Report Type: Spontaneous
  Country: LV (occurrence: LV)
  Receive Date: 20181009
  Receipt Date: 20181009
  Transmission Date: 20190205
  Serious: Yes (Hospitalization, Other)
  Sender: FDA-Public Use
  Company Number: LV-GILEAD-2018-0366860

PATIENT
  Age: 38 Year
  Sex: Male

DRUGS (4)
  1. EPCLUSA [Suspect]
     Active Substance: SOFOSBUVIR\VELPATASVIR
     Indication: HEPATITIS C
     Dosage: UNK
     Route: 048
     Dates: start: 20180711, end: 20180911
  2. METHADONE [Concomitant]
     Active Substance: METHADONE HYDROCHLORIDE
     Route: 048
  3. TENOFOVIR DISOPROXIL FUMARATE. [Concomitant]
     Active Substance: TENOFOVIR DISOPROXIL FUMARATE
     Dosage: UNK
     Route: 048
     Dates: start: 20160616
  4. TIVICAY [Concomitant]
     Active Substance: DOLUTEGRAVIR SODIUM
     Indication: HIV INFECTION
     Dosage: UNK
     Route: 048
     Dates: start: 20160616

REACTIONS (2)
  - Acute kidney injury [Not Recovered/Not Resolved]
  - Blood creatinine increased [Not Recovered/Not Resolved]

NARRATIVE: CASE EVENT DATE: 20180911
